FAERS Safety Report 5869948-5 (Version None)
Quarter: 2008Q3

REPORT INFORMATION
  Report Type: 
  Country: None (occurrence: None)
  Receive Date: 20080904
  Receipt Date: 20080825
  Transmission Date: 20090109
  Serious: Yes (Hospitalization)
  Sender: FDA-Public Use
  Company Number: BR-PFIZER INC-2007078739

PATIENT
  Sex: Female
  Weight: 80 kg

DRUGS (3)
  1. DEPO-PROVERA SUSPENSION/INJ [Suspect]
     Indication: OFF LABEL USE
     Route: 030
     Dates: start: 20070824, end: 20070824
  2. DEPO-PROVERA SUSPENSION/INJ [Suspect]
     Indication: VAGINAL HAEMORRHAGE
  3. TAPAZOL [Concomitant]
     Indication: HYPOTHYROIDISM
     Route: 048

REACTIONS (2)
  - PELVIC PAIN [None]
  - VAGINAL HAEMORRHAGE [None]
